FAERS Safety Report 24798257 (Version 1)
Quarter: 2025Q1

REPORT INFORMATION
  Report Type: Spontaneous
  Country: US (occurrence: US)
  Receive Date: 20250102
  Receipt Date: 20250102
  Transmission Date: 20250408
  Serious: No
  Sender: CELLTRION
  Company Number: US-CELLTRION INC.-2024US022693

PATIENT

DRUGS (4)
  1. RITUXIMAB [Suspect]
     Active Substance: RITUXIMAB
     Indication: Aplasia pure red cell
  2. BORTEZOMIB [Suspect]
     Active Substance: BORTEZOMIB
     Indication: Aplasia pure red cell
  3. DARBEPOETIN ALFA [Suspect]
     Active Substance: DARBEPOETIN ALFA
     Indication: Aplasia pure red cell
  4. PREDNISONE [Suspect]
     Active Substance: PREDNISONE
     Indication: Aplasia pure red cell

REACTIONS (1)
  - Drug ineffective for unapproved indication [Unknown]
